FAERS Safety Report 6006782-X (Version None)
Quarter: 2008Q4

REPORT INFORMATION
  Report Type: 
  Country: None (occurrence: None)
  Receive Date: 20081217
  Receipt Date: 20081208
  Transmission Date: 20090506
  Serious: Yes (Hospitalization)
  Sender: FDA-Public Use
  Company Number: PHHY2008NL31058

PATIENT

DRUGS (4)
  1. DIOVAN [Suspect]
     Indication: HYPERTENSION
     Dosage: 80 MG,
     Dates: start: 20080305, end: 20080401
  2. ESTROFEM [Concomitant]
     Dosage: 2 MG
     Dates: start: 20040130
  3. CHLORTALIDON [Concomitant]
     Dosage: 25 MG,
     Dates: start: 20080303
  4. KLACID [Concomitant]
     Dosage: 500 MG
     Dates: start: 20080305, end: 20080415

REACTIONS (1)
  - HENOCH-SCHONLEIN PURPURA [None]
